FAERS Safety Report 13079504 (Version 1)
Quarter: 2017Q1

REPORT INFORMATION
  Report Type: Report from Study
  Country: US (occurrence: US)
  Receive Date: 20170103
  Receipt Date: 20170103
  Transmission Date: 20170428
  Serious: Yes (Disabling, Other)
  Sender: FDA-Public Use
  Company Number: US-AMGEN-USASL2016185367

PATIENT
  Age: 48 Year
  Sex: Female

DRUGS (1)
  1. REPATHA [Suspect]
     Active Substance: EVOLOCUMAB
     Indication: PRODUCT USED FOR UNKNOWN INDICATION
     Dosage: 140 MG, Q2WK
     Route: 065
     Dates: start: 20161021

REACTIONS (7)
  - Disability [Unknown]
  - Urinary tract infection [Unknown]
  - Injury associated with device [Unknown]
  - Vitamin D deficiency [Unknown]
  - Migraine [Not Recovered/Not Resolved]
  - Kidney infection [Unknown]
  - Injection site pain [Unknown]

NARRATIVE: CASE EVENT DATE: 201610
